FAERS Safety Report 25700019 (Version 1)
Quarter: 2025Q3

REPORT INFORMATION
  Report Type: Spontaneous
  Country: US (occurrence: None)
  Receive Date: 20250818
  Receipt Date: 20250818
  Transmission Date: 20251021
  Serious: Yes (Life-Threatening, Hospitalization)
  Sender: FDA-CTU
  Company Number: None

PATIENT
  Age: 81 Year

DRUGS (2)
  1. APIXABAN [Suspect]
     Active Substance: APIXABAN
  2. APIXABAN [Concomitant]
     Active Substance: APIXABAN

REACTIONS (6)
  - Faeces discoloured [None]
  - Asthenia [None]
  - Haemoglobin decreased [None]
  - International normalised ratio increased [None]
  - Oesophagitis [None]
  - Oesophageal ulcer [None]

NARRATIVE: CASE EVENT DATE: 20240729
